FAERS Safety Report 12491482 (Version 2)
Quarter: 2016Q3

REPORT INFORMATION
  Report Type: Report from Study
  Country: DE (occurrence: DE)
  Receive Date: 20160623
  Receipt Date: 20160725
  Transmission Date: 20161109
  Serious: Yes (Hospitalization)
  Sender: FDA-Public Use
  Company Number: DE-ABBVIE-16K-062-1656014-00

PATIENT
  Age: 55 Year
  Sex: Male
  Weight: 72 kg

DRUGS (2)
  1. RAMIPRIL. [Concomitant]
     Active Substance: RAMIPRIL
     Indication: PRODUCT USED FOR UNKNOWN INDICATION
  2. HUMIRA [Suspect]
     Active Substance: ADALIMUMAB
     Indication: PSORIASIS
     Route: 058
     Dates: start: 20090615

REACTIONS (15)
  - Coronary artery occlusion [Recovering/Resolving]
  - Pneumonia [Recovering/Resolving]
  - Mitral valve incompetence [Recovering/Resolving]
  - Hypertension [Recovering/Resolving]
  - Arteriosclerosis coronary artery [Recovering/Resolving]
  - Non-obstructive cardiomyopathy [Recovering/Resolving]
  - Atrial fibrillation [Recovering/Resolving]
  - Infection [Recovering/Resolving]
  - Congestive cardiomyopathy [Recovering/Resolving]
  - General physical health deterioration [Recovering/Resolving]
  - Respiratory disorder [Recovering/Resolving]
  - Cardiac failure acute [Recovering/Resolving]
  - Rales [Recovering/Resolving]
  - Coronary artery disease [Recovering/Resolving]
  - Tachycardia [Recovering/Resolving]

NARRATIVE: CASE EVENT DATE: 201604
